FAERS Safety Report 10566494 (Version 1)
Quarter: 2014Q4

REPORT INFORMATION
  Report Type: Spontaneous
  Country: US (occurrence: US)
  Receive Date: 20141105
  Receipt Date: 20141105
  Transmission Date: 20150529
  Serious: No
  Sender: FDA-Public Use
  Company Number: US-PFIZER INC-2014305014

PATIENT
  Age: 14 Year
  Sex: Male
  Weight: 99 kg

DRUGS (8)
  1. DYMISTA [Concomitant]
     Active Substance: AZELASTINE HYDROCHLORIDE\FLUTICASONE PROPIONATE
     Dosage: UNK, 2X/DAY
  2. SOLU-MEDROL [Suspect]
     Active Substance: METHYLPREDNISOLONE SODIUM SUCCINATE
     Indication: PULMONARY CONGESTION
     Dosage: UNK
     Route: 042
  3. QVAR [Concomitant]
     Active Substance: BECLOMETHASONE DIPROPIONATE
     Dosage: UNK, 2X/DAY
  4. TERBUTALINE [Concomitant]
     Active Substance: TERBUTALINE
     Dosage: 2.1
  5. PEPCID [Concomitant]
     Active Substance: FAMOTIDINE
     Dosage: UNK
  6. SINGULAIR [Concomitant]
     Active Substance: MONTELUKAST SODIUM
     Dosage: 10 MG, DAILY
     Route: 048
  7. ALBUTEROL. [Concomitant]
     Active Substance: ALBUTEROL
     Dosage: USED AT HOME DAILY
  8. LEVOCETIRIZINE [Concomitant]
     Active Substance: LEVOCETIRIZINE
     Dosage: UNK, 2X/DAY

REACTIONS (3)
  - Drug ineffective [Recovering/Resolving]
  - Food allergy [Unknown]
  - Increased bronchial secretion [Recovering/Resolving]

NARRATIVE: CASE EVENT DATE: 2014
